FAERS Safety Report 9493412 (Version 1)
Quarter: 2013Q3

REPORT INFORMATION
  Report Type: Spontaneous
  Country: US (occurrence: US)
  Receive Date: 20130902
  Receipt Date: 20130902
  Transmission Date: 20140515
  Serious: No
  Sender: FDA-Public Use
  Company Number: US-009507513-1308USA006542

PATIENT
  Age: 23 Year
  Sex: Female
  Weight: 24.27 kg

DRUGS (2)
  1. NUVARING [Suspect]
     Indication: CONTRACEPTION
     Dosage: 3 WEEKS IN 1 WEEK RING FREE BREAK
     Route: 067
     Dates: start: 20130813
  2. LEVOTHYROXINE SODIUM [Concomitant]

REACTIONS (2)
  - Nausea [Recovered/Resolved]
  - Vomiting [Recovered/Resolved]
